FAERS Safety Report 5272995-8 (Version None)
Quarter: 2007Q1

REPORT INFORMATION
  Report Type: 
  Country: None (occurrence: None)
  Receive Date: 20070322
  Receipt Date: 20070313
  Transmission Date: 20070707
  Serious: Yes (Hospitalization)
  Sender: FDA-Public Use
  Company Number: NL-PFIZER INC-2007019970

PATIENT
  Sex: Female

DRUGS (1)
  1. CELEBREX [Suspect]
     Indication: ALLERGY TEST
     Dates: start: 20061116, end: 20061116

REACTIONS (8)
  - CHEST DISCOMFORT [None]
  - DIZZINESS [None]
  - DYSPHAGIA [None]
  - HYPERSENSITIVITY [None]
  - MALAISE [None]
  - NASAL CONGESTION [None]
  - PALLOR [None]
  - THROAT IRRITATION [None]
